FAERS Safety Report 18417299 (Version 1)
Quarter: 2020Q4

REPORT INFORMATION
  Report Type: Spontaneous
  Country: US (occurrence: US)
  Receive Date: 20201022
  Receipt Date: 20201022
  Transmission Date: 20210114
  Serious: No
  Sender: FDA-Public Use
  Company Number: 2020SGN02440

PATIENT
  Sex: Female

DRUGS (2)
  1. TUKYSA [Suspect]
     Active Substance: TUCATINIB
     Indication: BREAST CANCER FEMALE
     Dosage: UNK, BID
  2. CAPECITABINE. [Concomitant]
     Active Substance: CAPECITABINE
     Indication: BREAST CANCER FEMALE
     Dosage: UNK, BID

REACTIONS (9)
  - Lacrimation increased [Unknown]
  - Dry eye [Unknown]
  - Inappropriate schedule of product administration [Unknown]
  - Nausea [Unknown]
  - Radiation injury [Unknown]
  - Dry skin [Unknown]
  - Oral discomfort [Unknown]
  - Product dose omission issue [Unknown]
  - Paraesthesia oral [Unknown]
